FAERS Safety Report 8361381-X (Version None)
Quarter: 2012Q2

REPORT INFORMATION
  Report Type: 
  Country: None (occurrence: None)
  Receive Date: 20120515
  Receipt Date: 20120507
  Transmission Date: 20120825
  Serious: Yes (Hospitalization, Other)
  Sender: FDA-Public Use
  Company Number: US-ASTRAZENECA-2011SE25882

PATIENT
  Age: 58 Year
  Sex: Female
  Weight: 68.9 kg

DRUGS (27)
  1. HYDROCODONE BITARTRATE [Concomitant]
     Indication: PAIN
     Dosage: 10/325 DAILY
  2. IMODIUM [Concomitant]
  3. PAIN PILLS [Concomitant]
     Indication: PAIN
     Dosage: 5 MG EVERY 4-6 HOUR
     Route: 048
  4. TRANSIDONE [Concomitant]
  5. DYE HDNA ZOPYRID [Concomitant]
  6. SEROQUEL XR [Suspect]
     Route: 048
  7. SEROQUEL XR [Suspect]
     Route: 048
  8. PHENAZOPYRIDINE HCL TAB [Concomitant]
     Indication: BLADDER DISORDER
  9. CYCLOBENZAPRINE [Concomitant]
     Indication: MUSCLE RELAXANT THERAPY
  10. COUMADIN [Concomitant]
     Indication: CARDIAC DISORDER
  11. SEROQUEL XR [Suspect]
     Route: 048
  12. SEROQUEL XR [Suspect]
     Route: 048
  13. IMITREX [Concomitant]
  14. 2 MUSCLE RELAXANTS [Concomitant]
  15. KLONOPIN [Concomitant]
     Indication: RESTLESS LEGS SYNDROME
  16. LANTUS [Concomitant]
     Indication: DIABETES MELLITUS
  17. TRAZODONE HCL [Concomitant]
  18. HYDROCORTISONE [Concomitant]
     Indication: ADRENAL DISORDER
  19. SEROQUEL XR [Suspect]
     Indication: PSYCHOTIC DISORDER
     Route: 048
     Dates: start: 20090101, end: 20110428
  20. NEXIUM [Suspect]
     Indication: HIATUS HERNIA
     Route: 048
  21. SYNTHROID [Concomitant]
     Indication: THYROID DISORDER
  22. COUMADIN [Concomitant]
     Indication: THROMBOSIS
  23. SEROQUEL XR [Suspect]
     Indication: BIPOLAR DISORDER
     Route: 048
     Dates: start: 20090101, end: 20110428
  24. NEXIUM [Suspect]
     Indication: OESOPHAGEAL DISORDER
     Route: 048
  25. SEROQUEL XR [Suspect]
     Route: 048
     Dates: start: 20110501, end: 20110901
  26. SEROQUEL XR [Suspect]
     Route: 048
     Dates: start: 20110501, end: 20110901
  27. ZONEX [Concomitant]

REACTIONS (15)
  - ROAD TRAFFIC ACCIDENT [None]
  - DEPRESSION [None]
  - GASTROOESOPHAGEAL REFLUX DISEASE [None]
  - DISORIENTATION [None]
  - AGITATION [None]
  - MAJOR DEPRESSION [None]
  - LOGORRHOEA [None]
  - LIGAMENT RUPTURE [None]
  - DRUG DOSE OMISSION [None]
  - HALLUCINATION [None]
  - PSYCHOTIC DISORDER [None]
  - SCREAMING [None]
  - SOMNAMBULISM [None]
  - EMOTIONAL DISTRESS [None]
  - SUICIDAL IDEATION [None]
